FAERS Safety Report 13812694 (Version 4)
Quarter: 2017Q4

REPORT INFORMATION
  Report Type: Spontaneous
  Country: CH (occurrence: CH)
  Receive Date: 20170730
  Receipt Date: 20171023
  Transmission Date: 20180320
  Serious: Yes (Other)
  Sender: FDA-Public Use
  Company Number: CH-BEH-2017081418

PATIENT
  Age: 31 Year
  Sex: Female
  Weight: 78 kg

DRUGS (10)
  1. PREDNISONE. [Concomitant]
     Active Substance: PREDNISONE
     Dosage: 80 MG, QD
     Route: 065
     Dates: start: 20170411, end: 20170412
  2. PRIVIGEN [Suspect]
     Active Substance: HUMAN IMMUNOGLOBULIN G
     Indication: IMMUNE THROMBOCYTOPENIC PURPURA
     Dosage: 35 G, UNK
     Route: 042
     Dates: start: 20170406, end: 20170406
  3. PRIVIGEN [Suspect]
     Active Substance: HUMAN IMMUNOGLOBULIN G
     Dosage: 35 G, UNK
     Route: 042
     Dates: start: 20170407, end: 20170407
  4. PREDNISONE. [Concomitant]
     Active Substance: PREDNISONE
     Dosage: UNK
     Route: 065
     Dates: start: 20170331, end: 20170405
  5. PETHIDINE [Concomitant]
     Active Substance: MEPERIDINE
     Dosage: UNK
     Route: 065
     Dates: start: 201704
  6. PRIVIGEN [Suspect]
     Active Substance: HUMAN IMMUNOGLOBULIN G
     Dosage: 80 G, UNK
     Route: 065
     Dates: start: 20170410, end: 20170410
  7. MISOPROSTOL. [Concomitant]
     Active Substance: MISOPROSTOL
     Dosage: 200 ?G, TOT
     Route: 065
     Dates: start: 201704
  8. PRIVIGEN [Suspect]
     Active Substance: HUMAN IMMUNOGLOBULIN G
     Indication: THROMBOCYTOPENIA
     Dosage: 35 G, UNK
     Route: 042
     Dates: start: 20170405, end: 20170405
  9. SYNTOCINON [Concomitant]
     Active Substance: OXYTOCIN
     Dosage: UNK
     Route: 065
     Dates: start: 201704
  10. NITROUS OXIDE. [Concomitant]
     Active Substance: NITROUS OXIDE
     Dosage: UNK
     Route: 065
     Dates: start: 201704

REACTIONS (8)
  - Drug ineffective [Unknown]
  - Procedural pain [Unknown]
  - Intra-abdominal haematoma [Unknown]
  - Endometritis [Unknown]
  - Abdominal pain [Unknown]
  - Vulvovaginal candidiasis [Unknown]
  - Haemoglobin decreased [Unknown]
  - Escherichia test positive [Unknown]

NARRATIVE: CASE EVENT DATE: 201704
